FAERS Safety Report 6653252-1 (Version None)
Quarter: 2010Q1

REPORT INFORMATION
  Report Type: 
  Country: None (occurrence: None)
  Receive Date: 20100326
  Receipt Date: 20100315
  Transmission Date: 20100710
  Serious: Yes (Hospitalization, Other)
  Sender: FDA-Public Use
  Company Number: CI-BRISTOL-MYERS SQUIBB COMPANY-15033780

PATIENT
  Age: 44 Year
  Sex: Male
  Weight: 68 kg

DRUGS (7)
  1. STAVUDINE [Suspect]
     Indication: HIV INFECTION
     Dates: start: 20001001
  2. DIDANOSINE [Suspect]
     Indication: HIV INFECTION
     Dates: start: 20020801
  3. LAMIVUDINE [Suspect]
     Indication: HIV INFECTION
     Dosage: ALSO GIVEN FROM FEB-2004
     Dates: start: 20020801
  4. NELFINAVIR [Suspect]
     Indication: HIV INFECTION
     Dates: start: 20001001
  5. ZIDOVUDINE [Suspect]
     Indication: HIV INFECTION
     Dates: start: 19981001
  6. ABACAVIR [Suspect]
     Indication: HIV INFECTION
     Dates: start: 20040201
  7. LOPINAVIR AND RITONAVIR [Suspect]
     Indication: HIV INFECTION
     Dates: start: 20040201

REACTIONS (3)
  - HYPERTRIGLYCERIDAEMIA [None]
  - OSTEONECROSIS [None]
  - VIROLOGIC FAILURE [None]
